FAERS Safety Report 6976145-9 (Version None)
Quarter: 2010Q3

REPORT INFORMATION
  Report Type: 
  Country: None (occurrence: None)
  Receive Date: 20100910
  Receipt Date: 20090422
  Transmission Date: 20110219
  Serious: No
  Sender: FDA-Public Use
  Company Number: US-WYE-H09097609

PATIENT
  Age: 77 Year
  Sex: Male

DRUGS (9)
  1. PRISTIQ [Suspect]
     Indication: DEPRESSION
     Route: 048
     Dates: start: 20090301
  2. POTASSIUM CHLORIDE [Concomitant]
  3. COREG [Concomitant]
  4. TEMAZEPAM [Concomitant]
  5. LISINOPRIL [Concomitant]
  6. VITAMINS [Concomitant]
  7. LORAZEPAM [Concomitant]
  8. FUROSEMIDE [Concomitant]
  9. SIMVASTATIN [Concomitant]

REACTIONS (1)
  - DRUG INEFFECTIVE [None]
